FAERS Safety Report 8708439 (Version 2)
Quarter: 2013Q4

REPORT INFORMATION
  Report Type: Spontaneous
  Country: US (occurrence: US)
  Receive Date: 20120806
  Receipt Date: 20131031
  Transmission Date: 20140711
  Serious: No
  Sender: FDA-Public Use
  Company Number: US-009507513-2012SP035970

PATIENT
  Sex: Female

DRUGS (4)
  1. MIRALAX [Suspect]
     Indication: PRODUCT USED FOR UNKNOWN INDICATION
     Dosage: UNK UNK, UNKNOWN
     Route: 048
  2. TOPROL XL TABLETS [Suspect]
     Indication: PRODUCT USED FOR UNKNOWN INDICATION
     Dosage: UNK UNK, UNKNOWN
  3. ASPIRIN [Concomitant]
  4. MAGNESIUM (UNSPECIFIED) [Concomitant]

REACTIONS (1)
  - Muscle spasms [Unknown]
